FAERS Safety Report 7957419-1 (Version None)
Quarter: 2011Q4

REPORT INFORMATION
  Report Type: 
  Country: None (occurrence: None)
  Receive Date: 20111205
  Receipt Date: 20111201
  Transmission Date: 20120403
  Serious: Yes (Hospitalization)
  Sender: FDA-Public Use
  Company Number: CH-PFIZER INC-2011292803

PATIENT
  Age: 73 Year
  Sex: Female

DRUGS (6)
  1. CAMPTOSAR [Suspect]
     Indication: COLON CANCER METASTATIC
     Dosage: 100 MG DAILY
  2. ELOXATIN [Suspect]
     Indication: COLON CANCER METASTATIC
     Dosage: 50 MG DAILY
  3. FLUOROURACIL [Suspect]
     Indication: COLON CANCER METASTATIC
     Dosage: 1000 MG DAILY
  4. MARCUMAR [Concomitant]
     Indication: THROMBOSIS PROPHYLAXIS
     Dosage: UNK
  5. ACETAMINOPHEN [Concomitant]
     Dosage: UNK
  6. AVASTIN [Suspect]
     Indication: COLON CANCER METASTATIC
     Dosage: 600 MG DAILY

REACTIONS (2)
  - RENAL TUBULAR NECROSIS [None]
  - RENAL FAILURE [None]
